FAERS Safety Report 17712871 (Version 1)
Quarter: 2020Q2

REPORT INFORMATION
  Report Type: Spontaneous
  Country: BR (occurrence: BR)
  Receive Date: 20200427
  Receipt Date: 20200427
  Transmission Date: 20200714
  Serious: Yes (Other)
  Sender: FDA-Public Use
  Company Number: BR-ABBVIE-20P-020-3380051-00

PATIENT
  Sex: Female

DRUGS (1)
  1. DEPAKOTE [Suspect]
     Active Substance: DIVALPROEX SODIUM
     Indication: PRODUCT USED FOR UNKNOWN INDICATION
     Dosage: DD: 750MG; 250MG DURING THE DAY/500MG AT NIGHT
     Route: 065

REACTIONS (3)
  - Aspartate aminotransferase increased [Unknown]
  - Hepatic necrosis [Unknown]
  - Alanine aminotransferase increased [Unknown]
